FAERS Safety Report 8192352-4 (Version None)
Quarter: 2012Q1

REPORT INFORMATION
  Report Type: 
  Country: None (occurrence: None)
  Receive Date: 20120308
  Receipt Date: 20120227
  Transmission Date: 20120608
  Serious: Yes (Hospitalization)
  Sender: FDA-Public Use
  Company Number: US-BRISTOL-MYERS SQUIBB COMPANY-16422172

PATIENT
  Age: 66 Year
  Sex: Male
  Weight: 76 kg

DRUGS (3)
  1. TADALAFIL [Concomitant]
  2. TREPROSTINIL [Concomitant]
     Indication: COR PULMONALE CHRONIC
     Dosage: TRADE NAME:TYVASO 6MCG,AEROSOL
     Route: 055
     Dates: start: 20120204
  3. COUMADIN [Suspect]

REACTIONS (6)
  - INTERNATIONAL NORMALISED RATIO INCREASED [None]
  - OXYGEN SATURATION DECREASED [None]
  - CONVULSION [None]
  - DYSPNOEA [None]
  - BLOOD URINE PRESENT [None]
  - CEREBRAL HAEMORRHAGE [None]
